FAERS Safety Report 5108397-4 (Version None)
Quarter: 2006Q3

REPORT INFORMATION
  Report Type: 
  Country: None (occurrence: None)
  Receive Date: 20060919
  Receipt Date: 20060615
  Transmission Date: 20061208
  Serious: Yes (Hospitalization)
  Sender: FDA-Public Use
  Company Number: US-BOEHRINGER INGELHEIM PHARMACEUTICALS, INC.-2006-BP-06793BP

PATIENT
  Sex: Female

DRUGS (4)
  1. VIRAMUNE [Suspect]
     Indication: EXPOSURE TO COMMUNICABLE DISEASE
     Route: 048
     Dates: start: 20060528, end: 20060612
  2. VIRAMUNE [Suspect]
     Route: 048
     Dates: start: 20060515, end: 20060528
  3. TRUVADA [Concomitant]
     Indication: EXPOSURE TO COMMUNICABLE DISEASE
     Route: 048
  4. FTC [Concomitant]
     Route: 048

REACTIONS (5)
  - DYSPNOEA [None]
  - MOUTH ULCERATION [None]
  - PERIORBITAL OEDEMA [None]
  - SWELLING FACE [None]
  - TONGUE ULCERATION [None]
